FAERS Safety Report 15291314 (Version 2)
Quarter: 2018Q4

REPORT INFORMATION
  Report Type: Spontaneous
  Country: DE (occurrence: DE)
  Receive Date: 20180817
  Receipt Date: 20181101
  Transmission Date: 20190204
  Serious: Yes (Other)
  Sender: FDA-Public Use
  Company Number: DE-TEVA-2018-DE-942668

PATIENT
  Age: 35 Year
  Sex: Female
  Weight: 54 kg

DRUGS (9)
  1. MIFEGYNE [Concomitant]
     Active Substance: MIFEPRISTONE
     Indication: ABORTION INDUCED
     Route: 048
     Dates: start: 20180502, end: 20180503
  2. TORASEMID [Concomitant]
     Active Substance: TORSEMIDE
     Indication: HYPERTENSION
     Route: 048
  3. PANTOPRAZOLE [Suspect]
     Active Substance: PANTOPRAZOLE
     Indication: GASTRITIS PROPHYLAXIS
     Dosage: 40 MILLIGRAM DAILY;
     Route: 048
  4. METOPROLOL SUCCINATE. [Suspect]
     Active Substance: METOPROLOL SUCCINATE
     Indication: HYPERTENSION
     Dosage: 190 [MG/D ]/ INITIA 2 X 95MG/D, THEN DOSAGE DECREASE TO 2 X 47.5MG/D
     Route: 048
     Dates: start: 20171209, end: 20180504
  5. CERGEM [Concomitant]
     Active Substance: GEMEPROST
     Indication: ABORTION INDUCED
     Route: 067
     Dates: start: 20180502, end: 20180503
  6. DORZOLAMIDE [Concomitant]
     Active Substance: DORZOLAMIDE
     Indication: GLAUCOMA
     Route: 047
  7. CANDESARTAN. [Suspect]
     Active Substance: CANDESARTAN
     Indication: HYPERTENSION
     Dosage: 32 MILLIGRAM DAILY;
     Route: 048
  8. LAMOTRIGINE. [Suspect]
     Active Substance: LAMOTRIGINE
     Indication: EPILEPSY
     Dosage: 100 [MG/D ]/ 50 TO 100 MG/D
     Route: 048
     Dates: start: 20171209, end: 20180504
  9. NEPRESOL (DIHYDRALAZINE SULFATE) [Suspect]
     Active Substance: DIHYDRALAZINE SULFATE
     Indication: HYPERTENSION
     Dosage: 50 MILLIGRAM DAILY;
     Route: 048
     Dates: start: 20171209, end: 20180504

REACTIONS (3)
  - Oligohydramnios [Recovered/Resolved]
  - Maternal exposure during pregnancy [None]
  - Exposure during pregnancy [None]
